FAERS Safety Report 9473392 (Version 3)
Quarter: 2013Q3

REPORT INFORMATION
  Report Type: Report from Study
  Country: IL (occurrence: IL)
  Receive Date: 20130823
  Receipt Date: 20130903
  Transmission Date: 20140515
  Serious: Yes (Hospitalization)
  Sender: FDA-Public Use
  Company Number: IL-SANOFI-AVENTIS-2013SA084062

PATIENT
  Age: 65 Year
  Sex: Female

DRUGS (15)
  1. TAXOTERE [Suspect]
     Indication: HER-2 POSITIVE BREAST CANCER
     Route: 065
     Dates: start: 20130716
  2. TRASTUZUMAB [Suspect]
     Indication: HER-2 POSITIVE BREAST CANCER
     Route: 042
     Dates: start: 20130428, end: 20130428
  3. TRASTUZUMAB [Suspect]
     Indication: HER-2 POSITIVE BREAST CANCER
     Route: 042
     Dates: start: 20130730
  4. PERTUZUMAB [Suspect]
     Indication: HER-2 POSITIVE BREAST CANCER
     Dosage: LOADING DOSE
     Route: 042
     Dates: start: 20130428, end: 20130428
  5. PERTUZUMAB [Suspect]
     Indication: HER-2 POSITIVE BREAST CANCER
     Dosage: MAINTENANCE DOSE
     Route: 042
  6. HYDROCORT [Concomitant]
  7. ZANTAC [Concomitant]
  8. MORPHINE [Concomitant]
  9. PRAMIN [Concomitant]
     Dates: start: 20130428, end: 20130428
  10. PROMETHAZINE HYDROCHLORIDE [Concomitant]
     Dates: start: 20130428, end: 20130428
  11. FUSID [Concomitant]
     Dates: start: 20130428
  12. PARACETAMOL [Concomitant]
     Dates: start: 20130428, end: 20130428
  13. DALACIN [Concomitant]
     Dates: start: 20130521, end: 20130528
  14. CIPROXIN [Concomitant]
     Dates: start: 20130604, end: 20130609
  15. RED BLOOD CELLS [Concomitant]

REACTIONS (2)
  - Dyspnoea [Recovered/Resolved with Sequelae]
  - Pneumothorax [Recovered/Resolved with Sequelae]
